FAERS Safety Report 8850121 (Version 2)
Quarter: 2012Q4

REPORT INFORMATION
  Report Type: 
  Country: JP (occurrence: JP)
  Receive Date: 20121019
  Receipt Date: 20121226
  Transmission Date: 20130627
  Serious: Yes (Other)
  Sender: FDA-Public Use
  Company Number: JP-TEVA-364917USA

PATIENT
  Age: 56 Year
  Sex: Male

DRUGS (3)
  1. TREANDA [Suspect]
     Indication: MANTLE CELL LYMPHOMA
     Route: 042
     Dates: start: 20120709
  2. TREANDA [Suspect]
     Dosage: Regimen #2.
     Route: 042
     Dates: start: 20120809, end: 20120810
  3. TREANDA [Suspect]
     Dosage: Regimen #3
     Route: 042
     Dates: start: 20120906

REACTIONS (2)
  - Pericardial effusion [Not Recovered/Not Resolved]
  - Neutrophil count decreased [Recovered/Resolved]
